FAERS Safety Report 9626152 (Version 2)
Quarter: 2013Q4

REPORT INFORMATION
  Report Type: Spontaneous
  Country: IT (occurrence: IT)
  Receive Date: 20131016
  Receipt Date: 20131115
  Transmission Date: 20140711
  Serious: Yes (Hospitalization, Other)
  Sender: FDA-Public Use
  Company Number: IT-ELI_LILLY_AND_COMPANY-IT201310003027

PATIENT
  Age: 80 Year
  Sex: Female

DRUGS (8)
  1. HUMALOG LISPRO [Suspect]
     Indication: INSULIN-REQUIRING TYPE 2 DIABETES MELLITUS
     Dosage: 40 IU, QD
     Route: 058
     Dates: start: 20130101
  2. LANTUS [Suspect]
     Indication: INSULIN-REQUIRING TYPE 2 DIABETES MELLITUS
     Dosage: 14 IU, QD
     Route: 058
     Dates: start: 20130101
  3. PENTOXIFILLINE [Concomitant]
  4. IRBESARTAN [Concomitant]
     Dosage: UNK UNK, UNKNOWN
  5. MADOPAR [Concomitant]
     Dosage: 3 DF, UNKNOWN
     Route: 048
  6. TORVAST [Concomitant]
  7. DELECIT [Concomitant]
  8. EXEMESTANE [Concomitant]

REACTIONS (3)
  - Psychomotor skills impaired [Recovering/Resolving]
  - Hypoglycaemia [Recovering/Resolving]
  - Malnutrition [Unknown]
